FAERS Safety Report 17860358 (Version 1)
Quarter: 2020Q2

REPORT INFORMATION
  Report Type: Spontaneous
  Country: US (occurrence: US)
  Receive Date: 20200604
  Receipt Date: 20200604
  Transmission Date: 20200714
  Serious: Yes (Other)
  Sender: FDA-Public Use
  Company Number: US-PFIZER INC-2020217970

PATIENT

DRUGS (1)
  1. CHANTIX [Suspect]
     Active Substance: VARENICLINE TARTRATE
     Indication: SMOKING CESSATION THERAPY
     Dosage: UNK

REACTIONS (8)
  - Back pain [Unknown]
  - Insomnia [Unknown]
  - Loss of personal independence in daily activities [Unknown]
  - Lung neoplasm malignant [Unknown]
  - Intervertebral disc protrusion [Unknown]
  - Fall [Unknown]
  - Spinal fracture [Unknown]
  - Dysstasia [Unknown]
